FAERS Safety Report 8471021-7 (Version None)
Quarter: 2012Q2

REPORT INFORMATION
  Report Type: 
  Country: None (occurrence: None)
  Receive Date: 20120627
  Receipt Date: 20120621
  Transmission Date: 20120825
  Serious: No
  Sender: FDA-Public Use
  Company Number: US-PFIZER INC-2012150132

PATIENT
  Sex: Male
  Weight: 89.342 kg

DRUGS (4)
  1. LIPITOR [Suspect]
     Indication: BLOOD CHOLESTEROL INCREASED
     Dosage: 40 MG, UNK
     Dates: end: 20120101
  2. METOPROLOL [Concomitant]
     Indication: HEART RATE INCREASED
     Dosage: 25 MG, 2X/DAY
  3. PERCOCET [Suspect]
     Dosage: UNK
  4. CYMBALTA [Concomitant]
     Indication: HYPERTENSION
     Dosage: 60 MG, DAILY

REACTIONS (1)
  - MUSCLE SPASMS [None]
